FAERS Safety Report 7567987-X (Version None)
Quarter: 2011Q2

REPORT INFORMATION
  Report Type: 
  Country: None (occurrence: None)
  Receive Date: 20110616
  Receipt Date: 20110606
  Transmission Date: 20111010
  Serious: Yes (Hospitalization)
  Sender: FDA-Public Use
  Company Number: 1000021575

PATIENT
  Age: 67 Year
  Sex: Male

DRUGS (10)
  1. MEDIATENSYL (URAPIDIL) (CAPSULES) [Suspect]
     Indication: HYPERTENSION
     Dosage: 180 MG (60 MG, 3 IN 1 D), ORAL
     Route: 048
     Dates: end: 20110417
  2. XANAX [Suspect]
     Indication: DEPRESSION
     Dosage: 0.75 MG (0.25 MG, 3 IN 1 D), ORAL
     Route: 048
     Dates: end: 20110417
  3. CANDESARTAN CILEXETIL AND HYDROCHLOROTHIAZIDE [Suspect]
     Indication: HYPERTENSION
     Dosage: 16 MG/12.5MG, ORAL
     Route: 048
     Dates: end: 20110417
  4. ACARBOSE [Suspect]
     Indication: TYPE 2 DIABETES MELLITUS
     Dosage: 150 MG (50 MG, 3 IN 1 D), ORAL
     Route: 048
     Dates: end: 20110417
  5. ATENOLOL [Suspect]
     Indication: HYPERTENSION
     Dosage: 100 MG (100 MG, 1 IN 1 D), ORAL
     Route: 048
     Dates: end: 20110417
  6. CIPROFIBRATE SANDOZ (CIPROFIBRATE) (CAPSULES) [Suspect]
     Indication: DYSLIPIDAEMIA
     Dosage: 100 MG (100 MG, 1 IN 1 D), ORAL
     Route: 048
     Dates: end: 20110417
  7. MIRTAZAPINE [Suspect]
     Indication: DEPRESSION
     Dosage: 15 MG (15 MG, 1 IN 1 D), ORAL
     Route: 048
     Dates: end: 20110417
  8. METFORMIN HCL [Suspect]
     Indication: TYPE 2 DIABETES MELLITUS
     Dosage: 2550 MG (850 MG, 3 IN 1 D), ORAL
     Route: 048
     Dates: end: 20110417
  9. VERAPAMIL [Suspect]
     Indication: HYPERTENSION
     Dosage: 240 MG (240 MG, 1 IN 1 D), ORAL
     Route: 048
     Dates: end: 20110417
  10. ESCITALOPRAM [Suspect]
     Indication: DEPRESSION
     Dosage: 10 MG (10 MG, 1 IN 1 D), ORAL
     Route: 048
     Dates: end: 20110417

REACTIONS (15)
  - GENERAL PHYSICAL HEALTH DETERIORATION [None]
  - ABDOMINAL PAIN [None]
  - BRADYCARDIA [None]
  - DYSPNOEA [None]
  - DRUG LEVEL INCREASED [None]
  - HYPERKALAEMIA [None]
  - LACTIC ACIDOSIS [None]
  - DISORIENTATION [None]
  - DEVICE RELATED INFECTION [None]
  - DIARRHOEA [None]
  - SEPTIC SHOCK [None]
  - RENAL FAILURE ACUTE [None]
  - HYPOTENSION [None]
  - VOMITING [None]
  - STAPHYLOCOCCAL BACTERAEMIA [None]
